FAERS Safety Report 24992171 (Version 1)
Quarter: 2025Q1

REPORT INFORMATION
  Report Type: Spontaneous
  Country: US (occurrence: US)
  Receive Date: 20250220
  Receipt Date: 20250220
  Transmission Date: 20250409
  Serious: No
  Sender: INCYTE
  Company Number: US-EVENT-001602

PATIENT
  Age: 20 Year

DRUGS (1)
  1. OPZELURA [Suspect]
     Active Substance: RUXOLITINIB PHOSPHATE
     Indication: Eczema
     Dosage: 1.5 PERCENT, BID (APPLY A THIN LAYER TO EZ ON FACE AND BODY TWICE DAILY UNTIL CLEAR AS DIRECTED)
     Route: 065

REACTIONS (1)
  - Drug ineffective [Unknown]
